FAERS Safety Report 19269608 (Version 1)
Quarter: 2021Q2

REPORT INFORMATION
  Report Type: Spontaneous
  Country: KR (occurrence: KR)
  Receive Date: 20210518
  Receipt Date: 20210518
  Transmission Date: 20210717
  Serious: Yes (Hospitalization, Other)
  Sender: FDA-Public Use
  Company Number: KR-PFIZER INC-2021509259

PATIENT
  Age: 65 Year
  Sex: Male

DRUGS (1)
  1. SILDENAFIL CITRATE. [Suspect]
     Active Substance: SILDENAFIL CITRATE
     Dosage: 50 MG
     Route: 048

REACTIONS (2)
  - Subarachnoid haemorrhage [Recovered/Resolved with Sequelae]
  - Aneurysm ruptured [Recovered/Resolved with Sequelae]
